FAERS Safety Report 24211801 (Version 2)
Quarter: 2024Q3

REPORT INFORMATION
  Report Type: Spontaneous
  Country: US (occurrence: US)
  Receive Date: 20240814
  Receipt Date: 20240815
  Transmission Date: 20241017
  Serious: No
  Sender: MERCK
  Company Number: US-009507513-2407USA015841

PATIENT
  Age: 63 Year
  Sex: Female

DRUGS (9)
  1. JANUVIA [Suspect]
     Active Substance: SITAGLIPTIN PHOSPHATE
     Indication: Type 2 diabetes mellitus
     Dosage: ONCE DAILY
     Route: 048
     Dates: start: 202403, end: 202405
  2. METFORMIN [Concomitant]
     Active Substance: METFORMIN HYDROCHLORIDE
     Indication: Type 2 diabetes mellitus
  3. SYNTHROID [Concomitant]
     Active Substance: LEVOTHYROXINE SODIUM
  4. LIPITOR [Concomitant]
     Active Substance: ATORVASTATIN CALCIUM
  5. POTASSIUM [Concomitant]
     Active Substance: POTASSIUM
  6. HYDROCHLOROTHIAZIDE [Concomitant]
     Active Substance: HYDROCHLOROTHIAZIDE
  7. ASPIRIN [Concomitant]
     Active Substance: ASPIRIN
     Dosage: UNK, QD
  8. VITAMIN B12 [Concomitant]
     Active Substance: CYANOCOBALAMIN
  9. D3 VITAMIN [Concomitant]
     Dosage: UNK

REACTIONS (3)
  - Blood glucose increased [Not Recovered/Not Resolved]
  - Diabetic nephropathy [Not Recovered/Not Resolved]
  - Inability to afford medication [Unknown]

NARRATIVE: CASE EVENT DATE: 20240501
